FAERS Safety Report 9994923 (Version 1)
Quarter: 2014Q1

REPORT INFORMATION
  Report Type: Spontaneous
  Country: FR (occurrence: None)
  Receive Date: 20140306
  Receipt Date: 20140306
  Transmission Date: 20141002
  Serious: Yes (Hospitalization)
  Sender: FDA-Public Use
  Company Number: DSM-2014-00199

PATIENT
  Age: 54 Year
  Sex: Male

DRUGS (3)
  1. OLMETEC [Suspect]
     Indication: HYPERTENSION
     Dosage: 40 MG (40 MG, 1 IN 1 D), ORAL
     Route: 048
     Dates: end: 20140115
  2. DETENSIEL (BISOPROLOL) (10 MILLIGRAM, TABLET) (BISOPROLOL) [Concomitant]
  3. AMLOR (AMLODIPINE BESILATE) (10 MILLIGRAM, CAPSULE) (AMLODIPINE BESILATE) [Concomitant]

REACTIONS (17)
  - Diarrhoea [None]
  - Gastrointestinal disorder [None]
  - Renal failure acute [None]
  - Weight decreased [None]
  - Vomiting [None]
  - Abdominal pain upper [None]
  - Hypotension [None]
  - Rectal haemorrhage [None]
  - Gastritis [None]
  - Duodenitis [None]
  - Intestinal ulcer [None]
  - Folate deficiency [None]
  - Blood albumin decreased [None]
  - Leukocytosis [None]
  - Cell death [None]
  - Coeliac disease [None]
  - Haemoglobin abnormal [None]
